FAERS Safety Report 10514307 (Version 1)
Quarter: 2014Q4

REPORT INFORMATION
  Report Type: Spontaneous
  Country: IT (occurrence: IT)
  Receive Date: 20141013
  Receipt Date: 20141013
  Transmission Date: 20150528
  Serious: Yes (Other)
  Sender: FDA-Public Use
  Company Number: IT-TEVA-514876ISR

PATIENT
  Age: 39 Year
  Sex: Male

DRUGS (5)
  1. ZANTAC [Concomitant]
     Active Substance: RANITIDINE HYDROCHLORIDE
     Dosage: 50 MILLIGRAM DAILY;
     Route: 042
     Dates: start: 20141003, end: 20141003
  2. CARBOPLATINO TEVA [Suspect]
     Active Substance: CARBOPLATIN
     Indication: NASOPHARYNGEAL CANCER
     Dosage: 450 MILLIGRAM DAILY;
     Route: 041
     Dates: start: 20141003, end: 20141003
  3. ONDANSETRONE HIKMA [Concomitant]
     Active Substance: ONDANSETRON
     Dosage: 8 MILLIGRAM DAILY;
     Route: 042
     Dates: start: 20141003, end: 20141003
  4. PACLITAXEL KABI [Concomitant]
     Active Substance: PACLITAXEL
     Indication: NASOPHARYNGEAL CANCER
     Dosage: 300 MILLIGRAM DAILY;
     Route: 042
     Dates: start: 20141003, end: 20141003
  5. SOLU-CORTEF [Concomitant]
     Active Substance: HYDROCORTISONE SODIUM SUCCINATE
     Dosage: 250 MILLIGRAM DAILY;
     Route: 042
     Dates: start: 20141003, end: 20141003

REACTIONS (7)
  - Eye pruritus [Recovered/Resolved]
  - Blood pressure increased [Recovered/Resolved]
  - Oedema peripheral [Recovered/Resolved]
  - Infusion related reaction [None]
  - Flushing [Recovered/Resolved]
  - Abdominal discomfort [Recovered/Resolved]
  - Pruritus [Recovered/Resolved]

NARRATIVE: CASE EVENT DATE: 20141003
